FAERS Safety Report 23821212 (Version 2)
Quarter: 2024Q2

REPORT INFORMATION
  Report Type: Spontaneous
  Country: US (occurrence: US)
  Receive Date: 20240506
  Receipt Date: 20240605
  Transmission Date: 20240716
  Serious: No
  Sender: FDA-Public Use
  Company Number: US-PFIZER INC-PV202400045027

PATIENT
  Age: 12 Year
  Sex: Female

DRUGS (1)
  1. GENOTROPIN [Suspect]
     Active Substance: SOMATROPIN
     Dosage: DAILY DOSE: 1 MG/DAY 90 DAYS/WEEK

REACTIONS (3)
  - Drug dose omission by device [Unknown]
  - Device information output issue [Unknown]
  - Device leakage [Unknown]
